FAERS Safety Report 9630858 (Version 1)
Quarter: 2013Q4

REPORT INFORMATION
  Report Type: Spontaneous
  Country: HU (occurrence: HU)
  Receive Date: 20131018
  Receipt Date: 20131018
  Transmission Date: 20140711
  Serious: Yes (Hospitalization)
  Sender: FDA-Public Use
  Company Number: HU-JNJFOC-20131007929

PATIENT
  Age: 62 Year
  Sex: Male

DRUGS (2)
  1. XARELTO [Suspect]
     Indication: THROMBOSIS PROPHYLAXIS
     Route: 065
     Dates: start: 20130731, end: 20130809
  2. XARELTO [Suspect]
     Indication: HIP ARTHROPLASTY
     Route: 065
     Dates: start: 20130731, end: 20130809

REACTIONS (1)
  - Diarrhoea [Unknown]
